FAERS Safety Report 18487254 (Version 1)
Quarter: 2020Q4

REPORT INFORMATION
  Report Type: Spontaneous
  Country: FR (occurrence: FR)
  Receive Date: 20201110
  Receipt Date: 20201110
  Transmission Date: 20210114
  Serious: Yes (Other)
  Sender: FDA-Public Use
  Company Number: FR-FRESENIUS KABI-FK202011931

PATIENT
  Age: 19 Year
  Sex: Male

DRUGS (1)
  1. PARACETAMOL (MANUFACTURER UNKNOWN) [Suspect]
     Active Substance: ACETAMINOPHEN
     Indication: PRODUCT USED FOR UNKNOWN INDICATION
     Dosage: SINGLE DOSE
     Route: 065

REACTIONS (5)
  - Hypersensitivity [Recovering/Resolving]
  - Loss of consciousness [Recovering/Resolving]
  - Angioedema [Recovering/Resolving]
  - Urticaria [Recovering/Resolving]
  - Dyspnoea [Recovering/Resolving]

NARRATIVE: CASE EVENT DATE: 201711
